FAERS Safety Report 23821561 (Version 1)
Quarter: 2024Q2

REPORT INFORMATION
  Report Type: Spontaneous
  Country: US (occurrence: None)
  Receive Date: 20240504
  Receipt Date: 20240504
  Transmission Date: 20240715
  Serious: Yes (Hospitalization)
  Sender: FDA-Public Use
  Company Number: None

PATIENT
  Age: 67 Year
  Sex: Male

DRUGS (1)
  1. DRONEDARONE [Suspect]
     Active Substance: DRONEDARONE
     Indication: Atrial fibrillation
     Dates: start: 20220613, end: 20240424

REACTIONS (3)
  - Cardiac failure congestive [None]
  - Atrial fibrillation [None]
  - Cardiac failure [None]

NARRATIVE: CASE EVENT DATE: 20240422
